FAERS Safety Report 10915446 (Version 1)
Quarter: 2015Q1

REPORT INFORMATION
  Report Type: Spontaneous
  Country: US (occurrence: US)
  Receive Date: 20150316
  Receipt Date: 20150316
  Transmission Date: 20150721
  Serious: No
  Sender: FDA-Public Use
  Company Number: US-BIOGENIDEC-2015BI029217

PATIENT
  Sex: Female

DRUGS (1)
  1. TECFIDERA [Suspect]
     Active Substance: DIMETHYL FUMARATE
     Indication: MULTIPLE SCLEROSIS
     Route: 048
     Dates: start: 20150210

REACTIONS (14)
  - Abdominal distension [Unknown]
  - Eructation [Unknown]
  - Flushing [Recovered/Resolved]
  - Drug intolerance [Unknown]
  - Pyrexia [Unknown]
  - Musculoskeletal disorder [Unknown]
  - Neurological symptom [Unknown]
  - Abdominal pain upper [Unknown]
  - Diarrhoea [Recovered/Resolved]
  - Dyspepsia [Not Recovered/Not Resolved]
  - Fear [Unknown]
  - Memory impairment [Unknown]
  - Anaphylactic reaction [Unknown]
  - Pruritus [Unknown]
